FAERS Safety Report 23433433 (Version 2)
Quarter: 2024Q1

REPORT INFORMATION
  Report Type: Report from Study
  Country: US (occurrence: US)
  Receive Date: 20240123
  Receipt Date: 20240212
  Transmission Date: 20240410
  Serious: Yes (Other)
  Sender: FDA-Public Use
  Company Number: US-BAYER-2024A012438

PATIENT
  Age: 81 Year
  Sex: Female

DRUGS (2)
  1. ADEMPAS [Suspect]
     Active Substance: RIOCIGUAT
     Indication: Pulmonary hypertension
     Dosage: UNK
     Dates: start: 202401
  2. ADEMPAS [Suspect]
     Active Substance: RIOCIGUAT
     Indication: Pulmonary hypertension
     Dosage: 2 MG, TID
     Route: 048
     Dates: start: 202401

REACTIONS (8)
  - Melaena [None]
  - Gastrooesophageal reflux disease [None]
  - Haemoglobin decreased [None]
  - Peripheral swelling [None]
  - Oedema peripheral [Not Recovered/Not Resolved]
  - Dyspnoea [None]
  - Dyspnoea exertional [None]
  - Oxygen saturation decreased [None]

NARRATIVE: CASE EVENT DATE: 20240101
